FAERS Safety Report 4952857-3 (Version None)
Quarter: 2006Q2

REPORT INFORMATION
  Report Type: 
  Country: None (occurrence: None)
  Receive Date: 20060321
  Receipt Date: 20060310
  Transmission Date: 20061013
  Serious: Yes (Hospitalization)
  Sender: FDA-Public Use
  Company Number: EM2006-0091

PATIENT
  Age: 22 Month
  Sex: Male

DRUGS (4)
  1. TOBI [Suspect]
     Indication: PSEUDOMONAS INFECTION
     Dosage: 300 MG, BID, INHALATION
     Route: 055
     Dates: start: 20050927, end: 20051027
  2. CREON [Concomitant]
  3. CEFUROXIME [Concomitant]
  4. ALBUTEROL SPIROS [Concomitant]

REACTIONS (2)
  - CULTURE THROAT POSITIVE [None]
  - PSEUDOMONAS INFECTION [None]
